FAERS Safety Report 7263988-X (Version None)
Quarter: 2011Q1

REPORT INFORMATION
  Report Type: 
  Country: None (occurrence: None)
  Receive Date: 20110130
  Receipt Date: 20101101
  Transmission Date: 20110831
  Serious: No
  Sender: FDA-Public Use
  Company Number: US-ABBOTT-10P-163-0682640-00

PATIENT
  Sex: Female

DRUGS (2)
  1. HUMIRA [Suspect]
     Indication: PRODUCT USED FOR UNKNOWN INDICATION
     Dosage: THREE INJECTIONS TAKEN
  2. UNKNOWN ANTIBIOTIC [Suspect]
     Indication: SWELLING FACE

REACTIONS (3)
  - GINGIVAL PAIN [None]
  - SWELLING FACE [None]
  - NAUSEA [None]
